FAERS Safety Report 5887203-4 (Version None)
Quarter: 2008Q3

REPORT INFORMATION
  Report Type: 
  Country: None (occurrence: None)
  Receive Date: 20080915
  Receipt Date: 20080909
  Transmission Date: 20090109
  Serious: Yes (Life-Threatening)
  Sender: FDA-Public Use
  Company Number: 2008-183292-NL

PATIENT
  Age: 32 Year
  Sex: Female

DRUGS (5)
  1. ROCURONIUM BROMIDE [Suspect]
     Dosage: 65 MG ONCE, INTRAVENOUS (NOS)
     Route: 042
     Dates: start: 20040903, end: 20040903
  2. PROPOFOL [Suspect]
     Dosage: 200 MG ONCE; INTRAVENOUS (NOS)
     Route: 042
     Dates: start: 20040903, end: 20040903
  3. FENTANYL [Suspect]
     Dosage: 0.1 MG ONCE; INTRAVENOUS (NOS)
     Route: 042
     Dates: start: 20040903, end: 20040903
  4. ONDANSETRON [Suspect]
     Dosage: 4 MG ONCE, INTRAVENOUS (NOS)
     Route: 042
     Dates: start: 20040903, end: 20040903
  5. AMOXICILLIN AND CLAVULANATE POTASSIUM [Suspect]
     Dosage: 1.2 DF ONCE; INTRAVENOUS (NOS)
     Route: 042
     Dates: start: 20040903, end: 20040903

REACTIONS (5)
  - ABDOMINAL PAIN [None]
  - BRONCHOSPASM [None]
  - MYALGIA [None]
  - PRURITUS [None]
  - RASH [None]
